FAERS Safety Report 10050957 (Version 1)
Quarter: 2014Q1

REPORT INFORMATION
  Report Type: Spontaneous
  Country: US (occurrence: None)
  Receive Date: 20140328
  Receipt Date: 20140328
  Transmission Date: 20141002
  Serious: Yes (Other)
  Sender: FDA-Public Use
  Company Number: SYM-2014-18707

PATIENT
  Age: 66 Year
  Sex: Female
  Weight: 76.66 kg

DRUGS (41)
  1. MEPHYTON [Suspect]
     Indication: PRODUCT USED FOR UNKNOWN INDICATION
  2. ADVAIR [Suspect]
     Indication: RESPIRATORY DISORDER
     Route: 055
  3. FLONASE [Suspect]
     Indication: RESPIRATORY DISORDER
     Route: 045
  4. RYTHMOL [Suspect]
     Indication: RESPIRATORY DISORDER
  5. IPRATROPIUM BROMIDE [Suspect]
     Indication: PRODUCT USED FOR UNKNOWN INDICATION
  6. MONTELUKAST SODIUM [Suspect]
     Indication: ASTHMA
  7. ALLERGY MEDICATION [Suspect]
     Indication: PRODUCT USED FOR UNKNOWN INDICATION
  8. SODIUM RABEPRAZOLE (RABEPRAZOLE SODIUM0 [Concomitant]
  9. SALBUTAMOL SULPHATE [Concomitant]
  10. SPIRONOLACTONE [Concomitant]
  11. DIPHENHYDRAMINE HCL (DIPHENHYDRAMINE HYDROCHLORIDE) [Concomitant]
  12. DICYCLOMINE HYDROCHLORIDE (DICYCLOVERINE HYDROCHLORIDE) [Concomitant]
  13. CITRACAL (CITRACAL + D /01438101/) (ERGOCALCIFEROL, CALCIUM CITRATE) [Concomitant]
  14. WARFARIN SODIUM [Concomitant]
  15. PANCREATIN [Concomitant]
  16. DIAZEPAM [Concomitant]
  17. ASCORBIC ACID [Concomitant]
  18. VITAMIN E (TOCOPHEROL) [Concomitant]
  19. FIORICET WITH CODEINE (CODEINE PHOSPHATE, CAFFEINE, BUTALBITAL, PARACETAMOL) [Concomitant]
  20. FOLIC ACID [Concomitant]
  21. FRUSEMIDE (FUROSEMIDE) [Concomitant]
  22. GUAIPHENESIN (GUAIPHENESIN EXTENDED RELEASE) [Concomitant]
  23. NORCO (VICODIN) (PARACETAMOL, HYDROCODONE BITARTRATE) [Concomitant]
  24. POTASSIUM CHLORIDE [Concomitant]
  25. PRAVASTATIN SODIUM [Concomitant]
  26. BECLOMETHASONE DIPROPIONATE [Concomitant]
  27. ZOLEDRONIC ACID [Concomitant]
  28. SIMETHICONE [Concomitant]
  29. IRON SALT (IRON) [Concomitant]
  30. THYROXINE SODIUM (LEVOTHYROXINE SODIUM) [Concomitant]
  31. METOPROLOL SUCCINATE [Concomitant]
  32. TYLENOL WITH COEDINE (PANADEINE CO) (CODEINE PHOSPHATE, PARACETAMOL) [Concomitant]
  33. VALACICOLVIR HYDROCHLORIDE [Concomitant]
  34. VANCOMYCIN [Concomitant]
  35. CYANOCOBALAMIN [Concomitant]
  36. MULTIVITAMINS + MINERALS (MINERALS NOS W/VITAMINS NOS) [Concomitant]
  37. ONDANSETRON HYDROCHLORIDE [Concomitant]
  38. SERTRALINE HYDROCHLORIDE [Concomitant]
  39. PNEUMOCOCCAL VAC NONGSK [Concomitant]
  40. SEASON TRIVAL INFLU DRESD (OTHER THERAPEUTIC PRODUCTS) [Concomitant]
  41. NORMAL IMMUNOGLOBULIN [Concomitant]

REACTIONS (8)
  - Road traffic accident [None]
  - Malaise [None]
  - Hypersensitivity [None]
  - Cough [None]
  - Eye pruritus [None]
  - Throat irritation [None]
  - Rhinorrhoea [None]
  - Sinusitis [None]
